FAERS Safety Report 24113988 (Version 2)
Quarter: 2024Q3

REPORT INFORMATION
  Report Type: Spontaneous
  Country: US (occurrence: US)
  Receive Date: 20240720
  Receipt Date: 20240722
  Transmission Date: 20241017
  Serious: Yes (Death, Hospitalization)
  Sender: UNITED THERAPEUTICS
  Company Number: US-UNITED THERAPEUTICS-UNT-2024-022047

PATIENT
  Age: 71 Year
  Sex: Female

DRUGS (2)
  1. ORENITRAM [Suspect]
     Active Substance: TREPROSTINIL
     Indication: Pulmonary arterial hypertension
     Dosage: 0.625 MG, TID
     Dates: start: 2024
  2. ORENITRAM [Suspect]
     Active Substance: TREPROSTINIL
     Dosage: UNK
     Dates: start: 20240509, end: 20240713

REACTIONS (3)
  - General physical health deterioration [Fatal]
  - Oxygen saturation decreased [Not Recovered/Not Resolved]
  - Carbon dioxide increased [Recovered/Resolved]

NARRATIVE: CASE EVENT DATE: 20240711
